FAERS Safety Report 12011712 (Version 3)
Quarter: 2016Q3

REPORT INFORMATION
  Report Type: Spontaneous
  Country: US (occurrence: US)
  Receive Date: 20160205
  Receipt Date: 20160804
  Transmission Date: 20161109
  Serious: Yes (Other)
  Sender: FDA-Public Use
  Company Number: US-BAYER-2016-022746

PATIENT
  Sex: Female
  Weight: 73.47 kg

DRUGS (3)
  1. AVELOX [Suspect]
     Active Substance: MOXIFLOXACIN HYDROCHLORIDE
     Dosage: 400 MG, UNK
     Dates: start: 20051206
  2. CIPRO [Suspect]
     Active Substance: CIPROFLOXACIN HYDROCHLORIDE
     Dosage: 500 MG, UNK
     Dates: start: 20040621
  3. LEVAQUIN [Suspect]
     Active Substance: LEVOFLOXACIN
     Dosage: 500 MG, UNK
     Dates: start: 20031218, end: 20040416

REACTIONS (7)
  - Neuropathy peripheral [None]
  - Musculoskeletal injury [None]
  - Mental disorder [None]
  - Pain [None]
  - Cardiovascular disorder [None]
  - Nervous system disorder [None]
  - Skin injury [None]
